FAERS Safety Report 18886982 (Version 1)
Quarter: 2021Q1

REPORT INFORMATION
  Report Type: Report from Study
  Country: CA (occurrence: CA)
  Receive Date: 20210212
  Receipt Date: 20210212
  Transmission Date: 20210420
  Serious: Yes (Other)
  Sender: FDA-Public Use
  Company Number: CA-EMD SERONO-9218232

PATIENT
  Age: 57 Year
  Sex: Female

DRUGS (2)
  1. MAVENCLAD [Suspect]
     Active Substance: CLADRIBINE
     Dosage: FIRST YEAR WEEK TWO THERAPY: 20 MG FOR 1 TO 2, 10 MG 3 TO 5 DAYS
     Route: 048
  2. MAVENCLAD [Suspect]
     Active Substance: CLADRIBINE
     Indication: MULTIPLE SCLEROSIS
     Dosage: FIRST YEAR WEEK ONE THERAPY: 20 MG FOR 1 TO 3, 10MG 4 TO 5 DAYS
     Route: 048
     Dates: start: 20190802

REACTIONS (3)
  - Postmenopausal haemorrhage [Unknown]
  - Fatigue [Unknown]
  - Abdominal pain [Unknown]

NARRATIVE: CASE EVENT DATE: 202008
